FAERS Safety Report 7631630-1 (Version None)
Quarter: 2011Q3

REPORT INFORMATION
  Report Type: 
  Country: None (occurrence: None)
  Receive Date: 20110725
  Receipt Date: 20110127
  Transmission Date: 20111222
  Serious: Yes (Other)
  Sender: FDA-Public Use
  Company Number: US-BRISTOL-MYERS SQUIBB COMPANY-15514771

PATIENT
  Age: 88 Year
  Sex: Male

DRUGS (3)
  1. DILTIAZEM HCL [Concomitant]
  2. WARFARIN SODIUM [Suspect]
     Indication: CEREBROVASCULAR ACCIDENT
     Dosage: TAKING FOR OVER A YEAR.INITIAL DOSE-4MG REDUCED TO 2MG(1/2 TABLET).WARFARIN SODIUM TABLET.
  3. DIGOXIN [Concomitant]

REACTIONS (1)
  - SKIN NECROSIS [None]
